FAERS Safety Report 9907603 (Version 1)
Quarter: 2014Q1

REPORT INFORMATION
  Report Type: Spontaneous
  Country: GB (occurrence: GB)
  Receive Date: 20140219
  Receipt Date: 20140219
  Transmission Date: 20141002
  Serious: Yes (Other)
  Sender: FDA-Public Use
  Company Number: GB-009507513-1402GBR007667

PATIENT
  Age: 40 Year
  Sex: Male

DRUGS (5)
  1. MIRTAZAPINE [Suspect]
     Dosage: UNK
     Route: 048
     Dates: start: 20140114
  2. CITALOPRAM [Concomitant]
     Dosage: UNK
     Dates: start: 20131008, end: 20131204
  3. DOXYCYCLINE [Concomitant]
     Dosage: UNK
     Dates: start: 20131106, end: 20131113
  4. DOXYCYCLINE [Concomitant]
     Dosage: UNK
     Dates: start: 20131126, end: 20131203
  5. VENLAFAXINE HYDROCHLORIDE [Concomitant]
     Dosage: UNK
     Dates: start: 20131211, end: 20140130

REACTIONS (1)
  - Aggression [Recovering/Resolving]
